FAERS Safety Report 10603022 (Version 1)
Quarter: 2014Q4

REPORT INFORMATION
  Report Type: Report from Study
  Country: US (occurrence: US)
  Receive Date: 20141124
  Receipt Date: 20141124
  Transmission Date: 20150529
  Serious: Yes (Other)
  Sender: FDA-Public Use
  Company Number: US-ABBVIE-14P-163-1310928-00

PATIENT
  Sex: Female

DRUGS (1)
  1. LUPRON DEPOT [Suspect]
     Active Substance: LEUPROLIDE ACETATE
     Indication: ENDOMETRIOSIS
     Route: 065
     Dates: start: 1994, end: 1994

REACTIONS (5)
  - Endometriosis [Unknown]
  - Injection site pain [Recovered/Resolved]
  - Adhesion [Recovered/Resolved]
  - Endometriosis [Unknown]
  - Bone density abnormal [Unknown]

NARRATIVE: CASE EVENT DATE: 1994
